FAERS Safety Report 4356600-0 (Version None)
Quarter: 2004Q2

REPORT INFORMATION
  Report Type: 
  Country: None (occurrence: None)
  Receive Date: 20040507
  Receipt Date: 20040419
  Transmission Date: 20050107
  Serious: Yes (Life-Threatening)
  Sender: FDA-Public Use
  Company Number: GBS040414709

PATIENT
  Age: 77 Year
  Sex: Female
  Weight: 70 kg

DRUGS (4)
  1. XIGRIS [Suspect]
     Dosage: 24 UG/KG/HR
     Dates: start: 20040331
  2. CEFOTAXIME [Concomitant]
  3. NORADRENALINE [Concomitant]
  4. METRONIDAZOLE [Concomitant]

REACTIONS (2)
  - ELECTROLYTE IMBALANCE [None]
  - INAPPROPRIATE ANTIDIURETIC HORMONE SECRETION [None]
